FAERS Safety Report 4579194-3 (Version None)
Quarter: 2005Q1

REPORT INFORMATION
  Report Type: 
  Country: None (occurrence: None)
  Receive Date: 20050208
  Receipt Date: 20050208
  Transmission Date: 20050727
  Serious: Yes (Congenital Anomaly)
  Sender: FDA-Public Use
  Company Number: None

PATIENT
  Sex: Male
  Weight: 79.3795 kg

DRUGS (1)
  1. CIPRO [Suspect]
     Dates: start: 19981215, end: 19990101

REACTIONS (2)
  - CARDIAC ARREST [None]
  - EXTRASYSTOLES [None]
